FAERS Safety Report 6348776-0 (Version None)
Quarter: 2009Q3

REPORT INFORMATION
  Report Type: 
  Country: None (occurrence: None)
  Receive Date: 20090908
  Receipt Date: 20090825
  Transmission Date: 20100115
  Serious: Yes (Death)
  Sender: FDA-Public Use
  Company Number: PAR_03150_2009

PATIENT
  Sex: Male
  Weight: 81.1939 kg

DRUGS (13)
  1. MEGACE ES [Suspect]
     Indication: DECREASED APPETITE
     Dosage: (1 DF QD, ^NOT TAKING REGULARLY^ ORAL)
     Route: 048
     Dates: start: 20090201
  2. OXALIPLATIN [Concomitant]
  3. LEUCOVORIN CALCIUM [Concomitant]
  4. FLUOROURACIL [Concomitant]
  5. AVASTIN /00848101/ [Concomitant]
  6. NEUPOGEN [Concomitant]
  7. NEULASTA [Concomitant]
  8. ARANESP [Concomitant]
  9. FLOMAX [Concomitant]
  10. PROTONIX /01263201/ [Concomitant]
  11. NEXIUM [Concomitant]
  12. CARDIAZEM /00489701/ [Concomitant]
  13. ZYLOPRIM [Concomitant]

REACTIONS (3)
  - INCORRECT DOSE ADMINISTERED [None]
  - MALAISE [None]
  - PRODUCT TASTE ABNORMAL [None]
